FAERS Safety Report 5851226-1 (Version None)
Quarter: 2008Q3

REPORT INFORMATION
  Report Type: 
  Country: None (occurrence: None)
  Receive Date: 20080820
  Receipt Date: 20080805
  Transmission Date: 20090109
  Serious: Yes (Death)
  Sender: FDA-Public Use
  Company Number: AR-GENENTECH-266028

PATIENT
  Sex: Female

DRUGS (3)
  1. BEVACIZUMAB [Suspect]
     Indication: NON-SMALL CELL LUNG CANCER
     Dosage: 7.15 MG/KG, Q3W
     Route: 042
     Dates: start: 20060725, end: 20070913
  2. CISPLATIN [Suspect]
     Indication: NON-SMALL CELL LUNG CANCER
     Dosage: 80 MG/M2, Q3W
     Route: 042
     Dates: start: 20060725, end: 20061128
  3. GEMCITABINE [Suspect]
     Indication: NON-SMALL CELL LUNG CANCER
     Dosage: 1250 MG/M2, 2X Q3 WEEKS
     Route: 042
     Dates: start: 20060725, end: 20061212

REACTIONS (1)
  - DEATH [None]
